FAERS Safety Report 21241856 (Version 1)
Quarter: 2022Q3

REPORT INFORMATION
  Report Type: Spontaneous
  Country: US (occurrence: US)
  Receive Date: 20220823
  Receipt Date: 20220823
  Transmission Date: 20221027
  Serious: No
  Sender: FDA-Public Use
  Company Number: US-BAUSCH-BL-2022-020342

PATIENT
  Sex: Female

DRUGS (1)
  1. WELLBUTRIN XL [Suspect]
     Active Substance: BUPROPION HYDROCHLORIDE
     Indication: Depression
     Dosage: PATIENT TOOK IT 16 YEARS AGO FOR ABOUT 3-4 WEEKS
     Route: 065
     Dates: start: 2006

REACTIONS (1)
  - Urticaria [Recovered/Resolved]
